FAERS Safety Report 5333752-7 (Version None)
Quarter: 2007Q2

REPORT INFORMATION
  Report Type: 
  Country: None (occurrence: None)
  Receive Date: 20070524
  Receipt Date: 20070514
  Transmission Date: 20071010
  Serious: Yes (Other)
  Sender: FDA-Public Use
  Company Number: JP-PFIZER INC-2007034796

PATIENT
  Age: 74 Year
  Sex: Female

DRUGS (3)
  1. ZYVOX [Suspect]
     Indication: PNEUMONIA STAPHYLOCOCCAL
     Dosage: DAILY DOSE:1200MG
     Route: 042
     Dates: start: 20070319, end: 20070404
  2. VFEND [Concomitant]
  3. MAXIPIME [Concomitant]

REACTIONS (3)
  - HAEMATURIA [None]
  - MELAENA [None]
  - PURPURA [None]
